FAERS Safety Report 23972076 (Version 1)
Quarter: 2024Q2

REPORT INFORMATION
  Report Type: Spontaneous
  Country: US (occurrence: None)
  Receive Date: 20240612
  Receipt Date: 20240612
  Transmission Date: 20240716
  Serious: Yes (Death)
  Sender: FDA-Public Use
  Company Number: None

PATIENT
  Age: 81 Year
  Sex: Male
  Weight: 58.5 kg

DRUGS (4)
  1. MILTEFOSINE [Suspect]
     Active Substance: MILTEFOSINE
     Indication: Acanthamoeba infection
     Dosage: FREQUENCY : 3 TIMES A DAY;?
     Route: 048
     Dates: start: 20240504, end: 20240602
  2. VORICONAZOLE [Concomitant]
     Active Substance: VORICONAZOLE
     Dates: start: 20240503, end: 20240606
  3. FLUCYTOSINE [Concomitant]
     Active Substance: FLUCYTOSINE
     Dates: start: 20240503, end: 20240602
  4. SULFADIAZINE [Concomitant]
     Active Substance: SULFADIAZINE
     Dates: start: 20240503, end: 20240517

REACTIONS (2)
  - Renal failure [None]
  - Diarrhoea [None]

NARRATIVE: CASE EVENT DATE: 20240602
